FAERS Safety Report 11205237 (Version 1)
Quarter: 2015Q2

REPORT INFORMATION
  Report Type: Spontaneous
  Country: JP (occurrence: JP)
  Receive Date: 20150622
  Receipt Date: 20150622
  Transmission Date: 20150821
  Serious: Yes (Other)
  Sender: FDA-Public Use
  Company Number: JP-GLAXOSMITHKLINE-JP2015JPN084746

PATIENT
  Age: 35 Year
  Sex: Female

DRUGS (6)
  1. PREDONINE [Concomitant]
     Active Substance: PREDNISOLONE\PREDNISOLONE ACETATE\PREDNISOLONE SODIUM SUCCINATE
     Dosage: 5 MG, 1D
  2. LAMICTAL [Suspect]
     Active Substance: LAMOTRIGINE
     Indication: BIPOLAR DISORDER
     Dosage: 25 MG, TID
     Route: 048
     Dates: start: 2014
  3. PREDONINE [Concomitant]
     Active Substance: PREDNISOLONE\PREDNISOLONE ACETATE\PREDNISOLONE SODIUM SUCCINATE
     Indication: SYSTEMIC LUPUS ERYTHEMATOSUS
     Dosage: 40 MG, 1D
     Dates: start: 2007
  4. SOLANAX [Concomitant]
     Active Substance: ALPRAZOLAM
     Indication: SYSTEMIC LUPUS ERYTHEMATOSUS
     Dosage: UNK
     Dates: start: 2009
  5. LORAMET [Concomitant]
     Active Substance: LORMETAZEPAM
     Indication: SYSTEMIC LUPUS ERYTHEMATOSUS
     Dates: start: 2009
  6. PAXIL [Suspect]
     Active Substance: PAROXETINE HYDROCHLORIDE
     Indication: POSTPARTUM DEPRESSION

REACTIONS (2)
  - Blood immunoglobulin G decreased [Not Recovered/Not Resolved]
  - Mania [Unknown]
